FAERS Safety Report 16678676 (Version 1)
Quarter: 2019Q3

REPORT INFORMATION
  Report Type: Spontaneous
  Country: US (occurrence: US)
  Receive Date: 20190806
  Receipt Date: 20190806
  Transmission Date: 20191004
  Serious: Yes (Hospitalization)
  Sender: FDA-Public Use
  Company Number: None

PATIENT
  Age: 62 Year
  Sex: Male
  Weight: 116.7 kg

DRUGS (1)
  1. CEFTRIAXONE FOR INJECTION [Suspect]
     Active Substance: CEFTRIAXONE
     Indication: STREPTOCOCCAL ENDOCARDITIS
     Route: 040
     Dates: start: 20190723, end: 20190805

REACTIONS (6)
  - Red blood cell count decreased [None]
  - Fatigue [None]
  - Seizure [None]
  - Haematocrit decreased [None]
  - Asthenia [None]
  - Haemoglobin decreased [None]

NARRATIVE: CASE EVENT DATE: 20190805
